FAERS Safety Report 13434673 (Version 1)
Quarter: 2017Q2

REPORT INFORMATION
  Report Type: Report from Study
  Country: None (occurrence: US)
  Receive Date: 20170413
  Receipt Date: 20170413
  Transmission Date: 20170830
  Serious: Yes (Hospitalization, Other)
  Sender: FDA-Public Use
  Company Number: US-ABBVIE-17K-163-1877605-00

PATIENT
  Age: 45 Year
  Sex: Female
  Weight: 77.18 kg

DRUGS (2)
  1. HUMIRA [Suspect]
     Active Substance: ADALIMUMAB
     Indication: ANKYLOSING SPONDYLITIS
     Route: 058
     Dates: start: 2015, end: 20170217
  2. ESTRADIOL. [Concomitant]
     Active Substance: ESTRADIOL
     Indication: HORMONE REPLACEMENT THERAPY

REACTIONS (17)
  - White blood cell count increased [Unknown]
  - Rash [Recovered/Resolved]
  - Skin fissures [Recovered/Resolved]
  - Skin burning sensation [Recovered/Resolved]
  - Intervertebral disc protrusion [Recovering/Resolving]
  - Skin exfoliation [Recovered/Resolved]
  - Back pain [Recovering/Resolving]
  - Migraine [Recovered/Resolved]
  - Headache [Not Recovered/Not Resolved]
  - Bone pain [Recovering/Resolving]
  - Lip dry [Recovered/Resolved]
  - Spinal operation [Recovering/Resolving]
  - Dry skin [Recovered/Resolved]
  - Arthralgia [Recovering/Resolving]
  - Chapped lips [Recovered/Resolved]
  - Rash papular [Recovered/Resolved]
  - Rash pruritic [Recovered/Resolved]

NARRATIVE: CASE EVENT DATE: 2015
